FAERS Safety Report 23322845 (Version 1)
Quarter: 2023Q4

REPORT INFORMATION
  Report Type: Spontaneous
  Country: AT (occurrence: AT)
  Receive Date: 20231220
  Receipt Date: 20231220
  Transmission Date: 20240110
  Serious: Yes (Other)
  Sender: FDA-Public Use
  Company Number: AT-ABBVIE-5545600

PATIENT
  Age: 35 Year
  Sex: Male
  Weight: 85 kg

DRUGS (2)
  1. SKYRIZI [Suspect]
     Active Substance: RISANKIZUMAB-RZAA
     Indication: Product used for unknown indication
     Dosage: 2 TIMES 75MG WEEK 0, 4; (THEN) EVERY 12 WEEKS
     Route: 058
     Dates: start: 20221109, end: 20230804
  2. SKYRIZI [Suspect]
     Active Substance: RISANKIZUMAB-RZAA
     Dosage: 2 TIMES 75MG WEEK 0, 4; (THEN) EVERY 12 WEEKS
     Route: 058
     Dates: start: 202211, end: 2023

REACTIONS (4)
  - Dactylitis [Recovered/Resolved]
  - Arthralgia [Recovering/Resolving]
  - Arthritis [Recovered/Resolved]
  - Eczema [Unknown]

NARRATIVE: CASE EVENT DATE: 20230401
